FAERS Safety Report 8378518-9 (Version None)
Quarter: 2012Q2

REPORT INFORMATION
  Report Type: 
  Country: None (occurrence: None)
  Receive Date: 20120522
  Receipt Date: 20120515
  Transmission Date: 20120825
  Serious: Yes (Other)
  Sender: FDA-Public Use
  Company Number: JP-CUBIST-2012S1000277

PATIENT
  Age: 75 Year
  Sex: Male

DRUGS (1)
  1. CUBICIN [Suspect]
     Indication: OSTEOMYELITIS
     Dosage: DAILY DOSAGE UNKNOWN DOSE UNIT:U UNKNOWN
     Route: 041

REACTIONS (1)
  - EOSINOPHILIC PNEUMONIA [None]
